FAERS Safety Report 8510812-0 (Version None)
Quarter: 2012Q3

REPORT INFORMATION
  Report Type: 
  Country: None (occurrence: None)
  Receive Date: 20120716
  Receipt Date: 20120706
  Transmission Date: 20120928
  Serious: No
  Sender: FDA-Public Use
  Company Number: US-PFIZER INC-2012162736

PATIENT
  Sex: Male
  Weight: 97.506 kg

DRUGS (6)
  1. VIAGRA [Suspect]
     Indication: ERECTILE DYSFUNCTION
     Dosage: 100 MG, AS NEEDED
     Route: 048
  2. FLOMAX [Concomitant]
     Dosage: UNK
  3. SIMVASTATIN [Concomitant]
     Dosage: UNK
  4. FENOFIBRATE [Concomitant]
     Dosage: UNK
  5. LISINOPRIL [Concomitant]
     Dosage: UNK
  6. GAS-X [Suspect]
     Indication: FLATULENCE
     Dosage: UNK
     Dates: start: 20120101

REACTIONS (6)
  - CHEST PAIN [None]
  - FLATULENCE [None]
  - DRUG INEFFECTIVE [None]
  - BACK DISORDER [None]
  - ERUCTATION [None]
  - SLEEP DISORDER [None]
